FAERS Safety Report 8305834-9 (Version None)
Quarter: 2012Q2

REPORT INFORMATION
  Report Type: 
  Country: None (occurrence: None)
  Receive Date: 20120423
  Receipt Date: 20120419
  Transmission Date: 20120825
  Serious: Yes (Life-Threatening, Hospitalization, Other)
  Sender: FDA-Public Use
  Company Number: PHHY2012BR033972

PATIENT
  Sex: Male

DRUGS (2)
  1. EXFORGE [Suspect]
     Indication: HYPERTENSION
     Dosage: 1 DF (80/5 MG), DAILY
  2. EXFORGE [Suspect]
     Indication: CARDIAC DISORDER

REACTIONS (3)
  - PYREXIA [None]
  - AORTIC DISSECTION [None]
  - SEPSIS [None]
